FAERS Safety Report 6804861-8 (Version None)
Quarter: 2010Q2

REPORT INFORMATION
  Report Type: 
  Country: None (occurrence: None)
  Receive Date: 20100628
  Receipt Date: 20070530
  Transmission Date: 20101027
  Serious: Yes (Hospitalization, Other)
  Sender: FDA-Public Use
  Company Number: US-PFIZER INC-2007044735

PATIENT
  Sex: Female
  Weight: 23.181 kg

DRUGS (3)
  1. GEODON [Suspect]
     Indication: BIPOLAR DISORDER
     Dates: start: 20060601
  2. WELLBUTRIN [Concomitant]
  3. PROZAC [Concomitant]

REACTIONS (1)
  - BLOOD GLUCOSE INCREASED [None]
